FAERS Safety Report 5735764-8 (Version None)
Quarter: 2008Q2

REPORT INFORMATION
  Report Type: 
  Country: None (occurrence: None)
  Receive Date: 20080509
  Receipt Date: 20080509
  Transmission Date: 20081010
  Serious: No
  Sender: FDA-Public Use
  Company Number: None

PATIENT
  Age: 44 Year
  Sex: Male
  Weight: 73.9363 kg

DRUGS (1)
  1. CYCLOBENZAPRINE [Suspect]
     Indication: INSOMNIA
     Dosage: 1 TAB DAILY PO
     Route: 048
     Dates: start: 20080503, end: 20080508

REACTIONS (4)
  - BLOOD PRESSURE INCREASED [None]
  - HEADACHE [None]
  - PHARMACEUTICAL PRODUCT COMPLAINT [None]
  - SELF-MEDICATION [None]
